FAERS Safety Report 23696892 (Version 1)
Quarter: 2024Q2

REPORT INFORMATION
  Report Type: Report from Study
  Country: US (occurrence: US)
  Receive Date: 20240402
  Receipt Date: 20240402
  Transmission Date: 20240716
  Serious: Yes (Other)
  Sender: FDA-Public Use
  Company Number: US-PFIZER INC-PV202400041600

PATIENT
  Age: 81 Month
  Sex: Female

DRUGS (1)
  1. METHOTREXATE SODIUM [Suspect]
     Active Substance: METHOTREXATE SODIUM
     Indication: Glycogen storage disease type II
     Dosage: 0.4 MG/KG

REACTIONS (3)
  - Neutropenia [Unknown]
  - Stomatitis [Unknown]
  - Selective eating disorder [Unknown]
